FAERS Safety Report 15839368 (Version 1)
Quarter: 2019Q1

REPORT INFORMATION
  Report Type: Spontaneous
  Country: FR (occurrence: FR)
  Receive Date: 20190117
  Receipt Date: 20190117
  Transmission Date: 20190417
  Serious: Yes (Life-Threatening, Hospitalization)
  Sender: FDA-Public Use
  Company Number: FR-MYLANLABS-2019M1003636

PATIENT
  Age: 59 Year
  Sex: Female
  Weight: 40 kg

DRUGS (6)
  1. FLUOROURACILE [Suspect]
     Active Substance: FLUOROURACIL
     Dosage: 3300 MILLIGRAM (SUR DEUX JOURS)
     Route: 042
     Dates: start: 20171201, end: 20171202
  2. ZOPHREN                            /00955301/ [Suspect]
     Active Substance: ONDANSETRON
     Indication: PROPHYLAXIS OF NAUSEA AND VOMITING
     Dosage: 8 MILLIGRAM
     Route: 042
     Dates: start: 20171201, end: 20171201
  3. FLUOROURACILE [Suspect]
     Active Substance: FLUOROURACIL
     Indication: OESOPHAGEAL SQUAMOUS CELL CARCINOMA
     Dosage: 550 MILLIGRAM
     Route: 042
     Dates: start: 20171201, end: 20171201
  4. METHYLPREDNISOLONE. [Suspect]
     Active Substance: METHYLPREDNISOLONE
     Indication: ALLERGY PROPHYLAXIS
     Dosage: 120 MILLIGRAM
     Route: 042
     Dates: start: 20171201, end: 20171201
  5. FOLINATE DE CALCIUM [Suspect]
     Active Substance: LEUCOVORIN CALCIUM
     Indication: OESOPHAGEAL SQUAMOUS CELL CARCINOMA
     Dosage: 55.2 MILLIGRAM
     Route: 042
     Dates: start: 20171201, end: 20171201
  6. OXALIPLATIN. [Suspect]
     Active Substance: OXALIPLATIN
     Indication: OESOPHAGEAL SQUAMOUS CELL CARCINOMA
     Dosage: UNK
     Route: 042
     Dates: start: 20171201, end: 20171201

REACTIONS (2)
  - Encephalopathy [Recovered/Resolved]
  - Status epilepticus [Recovered/Resolved]

NARRATIVE: CASE EVENT DATE: 20171202
